FAERS Safety Report 8447618-7 (Version None)
Quarter: 2012Q2

REPORT INFORMATION
  Report Type: 
  Country: None (occurrence: None)
  Receive Date: 20120619
  Receipt Date: 20120612
  Transmission Date: 20120825
  Serious: Yes (Other)
  Sender: FDA-Public Use
  Company Number: US-PFIZER INC-2012094314

PATIENT
  Sex: Female
  Weight: 62.132 kg

DRUGS (2)
  1. LO/OVRAL-28 [Suspect]
     Indication: MIGRAINE PROPHYLAXIS
  2. LO/OVRAL-28 [Suspect]
     Indication: OFF LABEL USE
     Dosage: UNK, 1X/DAY
     Route: 048

REACTIONS (1)
  - HYPOTHYROIDISM [None]
